FAERS Safety Report 7599600-X (Version None)
Quarter: 2011Q3

REPORT INFORMATION
  Report Type: 
  Country: None (occurrence: None)
  Receive Date: 20110711
  Receipt Date: 20100729
  Transmission Date: 20111222
  Serious: No
  Sender: FDA-Public Use
  Company Number: US-BAYER-201023935NA

PATIENT
  Age: 31 Year
  Sex: Female

DRUGS (4)
  1. DICLOSENAC [Concomitant]
  2. ANTIBIOTICS [Concomitant]
     Indication: CYSTITIS
  3. YAZ [Suspect]
     Indication: ACNE
     Route: 048
     Dates: start: 20090101
  4. YAZ [Suspect]
     Indication: CONTRACEPTION

REACTIONS (3)
  - MENSTRUATION DELAYED [None]
  - ACNE [None]
  - POLYMENORRHOEA [None]
